FAERS Safety Report 8423241-5 (Version None)
Quarter: 2012Q2

REPORT INFORMATION
  Report Type: 
  Country: None (occurrence: None)
  Receive Date: 20120608
  Receipt Date: 20120605
  Transmission Date: 20120825
  Serious: Yes (Life-Threatening, Hospitalization, Disabling)
  Sender: FDA-Public Use
  Company Number: NZ-B.I. PHARMACEUTICALS,INC./RIDGEFIELD-2012-AU-00611AU

PATIENT
  Age: 69 Year
  Sex: Male

DRUGS (4)
  1. SOTALOL [Concomitant]
     Dosage: 160 MG
  2. CILAZAPRIL [Concomitant]
     Dosage: 5 MG
  3. DIGOXIN [Concomitant]
     Dosage: 125 MCG
  4. PRADAXA [Suspect]
     Indication: CEREBROVASCULAR ACCIDENT PROPHYLAXIS
     Dosage: 300 MG
     Dates: end: 20120211

REACTIONS (7)
  - HAEMORRHAGIC STROKE [None]
  - SPEECH DISORDER [None]
  - LOSS OF CONSCIOUSNESS [None]
  - DYSPNOEA [None]
  - DEEP VEIN THROMBOSIS [None]
  - COMA SCALE ABNORMAL [None]
  - PULMONARY EMBOLISM [None]
